FAERS Safety Report 5659809-9 (Version None)
Quarter: 2008Q1

REPORT INFORMATION
  Report Type: 
  Country: None (occurrence: None)
  Receive Date: 20080311
  Receipt Date: 20070727
  Transmission Date: 20080703
  Serious: No
  Sender: FDA-Public Use
  Company Number: US-BAYER-200712384BCC

PATIENT
  Age: 50 Year
  Sex: Female
  Weight: 82 kg

DRUGS (5)
  1. ALEVE [Suspect]
     Indication: CONFUSIONAL STATE
     Route: 048
     Dates: start: 20070725
  2. XANAX [Concomitant]
  3. PAXIL [Concomitant]
  4. VYTORIN [Concomitant]
  5. OXYCODONE HCL [Concomitant]

REACTIONS (2)
  - CONFUSIONAL STATE [None]
  - NO ADVERSE EVENT [None]
